FAERS Safety Report 9144002 (Version 1)
Quarter: 2013Q1

REPORT INFORMATION
  Report Type: Report from Study
  Country: US (occurrence: US)
  Receive Date: 20130306
  Receipt Date: 20130306
  Transmission Date: 20140127
  Serious: Yes (Other)
  Sender: FDA-Public Use
  Company Number: US-ROCHE-1194284

PATIENT
  Sex: 0

DRUGS (5)
  1. RITUXIMAB [Suspect]
     Indication: NON-HODGKIN^S LYMPHOMA
     Dosage: ON DAYS 1 AND 8
     Route: 065
  2. CYTARABINE [Suspect]
     Indication: NON-HODGKIN^S LYMPHOMA
     Route: 065
  3. THIOTEPA [Suspect]
     Indication: NON-HODGKIN^S LYMPHOMA
     Route: 065
  4. BUSULFAN [Suspect]
     Indication: NON-HODGKIN^S LYMPHOMA
     Route: 065
  5. CYCLOPHOSPHAMIDE [Suspect]
     Indication: NON-HODGKIN^S LYMPHOMA
     Route: 065

REACTIONS (4)
  - Neurotoxicity [Unknown]
  - Thrombotic microangiopathy [Unknown]
  - Diarrhoea [Unknown]
  - Mucosal inflammation [Unknown]
